FAERS Safety Report 8454894-3 (Version None)
Quarter: 2012Q2

REPORT INFORMATION
  Report Type: 
  Country: None (occurrence: None)
  Receive Date: 20120615
  Receipt Date: 20120615
  Transmission Date: 20120825
  Serious: No
  Sender: FDA-Public Use
  Company Number: None

PATIENT
  Age: 80 Year
  Sex: Female
  Weight: 64.4108 kg

DRUGS (4)
  1. CLINDAMYCIN [Suspect]
     Indication: TOOTH ABSCESS
     Dosage: 1 EVERY 6 HRS DAILY
     Dates: start: 20120506, end: 20120515
  2. CLINDAMYCIN [Suspect]
     Indication: ENDODONTIC PROCEDURE
     Dosage: 1 EVERY 6 HRS DAILY
     Dates: start: 20120506, end: 20120515
  3. CLINDAMYCIN [Suspect]
     Indication: TOOTH ABSCESS
     Dosage: 1 EVERY 6 HRS DAILY
     Dates: start: 20120516, end: 20120518
  4. CLINDAMYCIN [Suspect]
     Indication: ENDODONTIC PROCEDURE
     Dosage: 1 EVERY 6 HRS DAILY
     Dates: start: 20120516, end: 20120518

REACTIONS (2)
  - URTICARIA [None]
  - RASH [None]
